FAERS Safety Report 24564929 (Version 1)
Quarter: 2024Q4

REPORT INFORMATION
  Report Type: Spontaneous
  Country: US (occurrence: US)
  Receive Date: 20241030
  Receipt Date: 20241030
  Transmission Date: 20250115
  Serious: Yes (Other)
  Sender: PFIZER
  Company Number: US-PFIZER INC-202400287584

PATIENT
  Age: 49 Year
  Sex: Female
  Weight: 95.25 kg

DRUGS (3)
  1. XELJANZ XR [Suspect]
     Active Substance: TOFACITINIB CITRATE
     Dosage: UNK
  2. TIROSINT [Concomitant]
     Active Substance: LEVOTHYROXINE SODIUM
  3. FOLIC ACID [Concomitant]
     Active Substance: FOLIC ACID

REACTIONS (2)
  - Neoplasm malignant [Unknown]
  - Agranulocytosis [Unknown]
